FAERS Safety Report 11136853 (Version 1)
Quarter: 2015Q2

REPORT INFORMATION
  Report Type: Spontaneous
  Country: GB (occurrence: GB)
  Receive Date: 20150526
  Receipt Date: 20150526
  Transmission Date: 20150821
  Serious: Yes (Other)
  Sender: FDA-Public Use
  Company Number: GB-HOSPIRA-2874547

PATIENT
  Age: 33 Year
  Sex: Female

DRUGS (1)
  1. AMIKACIN [Suspect]
     Active Substance: AMIKACIN
     Indication: PRODUCT USED FOR UNKNOWN INDICATION

REACTIONS (3)
  - Deafness [Unknown]
  - Cerumen impaction [Unknown]
  - Tinnitus [Unknown]
